FAERS Safety Report 19013719 (Version 1)
Quarter: 2021Q1

REPORT INFORMATION
  Report Type: Spontaneous
  Country: CA (occurrence: CA)
  Receive Date: 20210316
  Receipt Date: 20210316
  Transmission Date: 20210420
  Serious: Yes (Other)
  Sender: FDA-Public Use
  Company Number: CA-ABBVIE-21K-028-3815649-00

PATIENT
  Age: 71 Year
  Sex: Male

DRUGS (6)
  1. DUODOPA [Suspect]
     Active Substance: CARBIDOPA\LEVODOPA
     Indication: PARKINSON^S DISEASE
     Route: 050
  2. DUODOPA [Suspect]
     Active Substance: CARBIDOPA\LEVODOPA
  3. DOCUSATE SODIUM;SENNA ALEXANDRINA [Concomitant]
     Active Substance: DOCUSATE SODIUM\SENNA LEAF
     Indication: PRODUCT USED FOR UNKNOWN INDICATION
  4. CLINDAMYCIN HYDROCHLORIDE. [Suspect]
     Active Substance: CLINDAMYCIN HYDROCHLORIDE
     Indication: TOOTH INFECTION
     Route: 065
  5. APO?LEVOCARB [Concomitant]
     Active Substance: CARBIDOPA\LEVODOPA
     Indication: PRODUCT USED FOR UNKNOWN INDICATION
  6. LEVOCETIRIZINE HYDROCHLORIDE [Concomitant]
     Active Substance: LEVOCETIRIZINE HYDROCHLORIDE
     Indication: PRODUCT USED FOR UNKNOWN INDICATION

REACTIONS (12)
  - Tooth infection [Recovered/Resolved]
  - Gastrointestinal motility disorder [Recovered/Resolved]
  - Device dislocation [Recovered/Resolved]
  - Abdominal distension [Recovered/Resolved]
  - Device issue [Recovered/Resolved]
  - Stoma site discharge [Recovered/Resolved]
  - Gastrointestinal pain [Recovered/Resolved]
  - Abdominal discomfort [Recovered/Resolved]
  - Therapeutic product effect variable [Recovered/Resolved]
  - Gastrointestinal disorder [Recovered/Resolved]
  - On and off phenomenon [Recovered/Resolved]
  - Abdominal pain upper [Recovered/Resolved]
